FAERS Safety Report 14154069 (Version 4)
Quarter: 2018Q1

REPORT INFORMATION
  Report Type: Report from Study
  Country: CA (occurrence: CA)
  Receive Date: 20171102
  Receipt Date: 20180216
  Transmission Date: 20180508
  Serious: Yes (Other)
  Sender: FDA-Public Use
  Company Number: CA-BRISTOL-MYERS SQUIBB COMPANY-BMS-2016-083583

PATIENT
  Age: 11 Year
  Sex: Female

DRUGS (2)
  1. ABATACEPT [Suspect]
     Active Substance: ABATACEPT
     Indication: RHEUMATOID ARTHRITIS
     Dosage: 300 MG, Q4WK
     Route: 042
     Dates: start: 20160906
  2. DICLOFENAC [Concomitant]
     Active Substance: DICLOFENAC
     Indication: PRODUCT USED FOR UNKNOWN INDICATION
     Route: 065

REACTIONS (11)
  - Off label use [Unknown]
  - Malaise [Recovering/Resolving]
  - Arthritis [Unknown]
  - Joint stiffness [Unknown]
  - Productive cough [Unknown]
  - Pyrexia [Unknown]
  - Pain [Unknown]
  - Pertussis [Unknown]
  - Nasopharyngitis [Unknown]
  - Swelling [Unknown]
  - Influenza [Not Recovered/Not Resolved]

NARRATIVE: CASE EVENT DATE: 20161223
